FAERS Safety Report 22797558 (Version 6)
Quarter: 2023Q4

REPORT INFORMATION
  Report Type: Report from Study
  Country: FR (occurrence: None)
  Receive Date: 20230808
  Receipt Date: 20231122
  Transmission Date: 20240110
  Serious: Yes (Hospitalization)
  Sender: FDA-Public Use
  Company Number: FR-ROCHE-3398634

PATIENT
  Age: 48 Year
  Sex: Female
  Weight: 56 kg

DRUGS (3)
  1. ATEZOLIZUMAB [Suspect]
     Active Substance: ATEZOLIZUMAB
     Indication: Triple negative breast cancer
     Route: 041
     Dates: start: 20230731
  2. FLUOXETINE [Concomitant]
     Active Substance: FLUOXETINE HYDROCHLORIDE
     Indication: Depression
     Route: 048
     Dates: start: 20170301
  3. ZOMIG [Concomitant]
     Active Substance: ZOLMITRIPTAN
     Indication: Headache
     Route: 048
     Dates: start: 20170701

REACTIONS (2)
  - Hyperthermia [Recovered/Resolved]
  - Musculoskeletal chest pain [Recovered/Resolved with Sequelae]

NARRATIVE: CASE EVENT DATE: 20230731
